FAERS Safety Report 4575589-2 (Version None)
Quarter: 2005Q1

REPORT INFORMATION
  Report Type: 
  Country: None (occurrence: None)
  Receive Date: 20050209
  Receipt Date: 20050128
  Transmission Date: 20050727
  Serious: Yes (Hospitalization)
  Sender: FDA-Public Use
  Company Number: US-JNJFOC-20050200408

PATIENT
  Age: 97 Year
  Sex: Female

DRUGS (6)
  1. RISPERDAL [Suspect]
     Route: 049
  2. RISPERDAL [Suspect]
     Indication: AGITATION
     Route: 049
  3. DIGOXIN [Concomitant]
  4. CARDIZEM [Concomitant]
  5. CARDIZEM [Concomitant]
  6. CARDIZEM [Concomitant]

REACTIONS (5)
  - COMA [None]
  - DROOLING [None]
  - EPILEPSY [None]
  - NAUSEA [None]
  - PARKINSON'S DISEASE [None]
